FAERS Safety Report 7799177 (Version 5)
Quarter: 2013Q4

REPORT INFORMATION
  Report Type: Spontaneous
  Country: JP (occurrence: JP)
  Receive Date: 20110204
  Receipt Date: 20131007
  Transmission Date: 20140711
  Serious: Yes (Death, Hospitalization, Other)
  Sender: FDA-Public Use
  Company Number: JP-JNJFOC-20110107437

PATIENT
  Age: 33 Year
  Sex: Female
  Weight: 54 kg

DRUGS (18)
  1. REMICADE [Suspect]
     Indication: INTESTINAL FISTULA
     Route: 042
  2. REMICADE [Suspect]
     Indication: INTESTINAL FISTULA
     Route: 042
  3. REMICADE [Suspect]
     Indication: INTESTINAL FISTULA
     Route: 042
  4. REMICADE [Suspect]
     Indication: INTESTINAL FISTULA
     Route: 042
  5. REMICADE [Suspect]
     Indication: INTESTINAL FISTULA
     Route: 042
  6. REMICADE [Suspect]
     Indication: INTESTINAL FISTULA
     Dosage: 1ST INFUSION
     Route: 042
     Dates: start: 20090821
  7. REMICADE [Suspect]
     Indication: INTESTINAL FISTULA
     Dosage: 7TH INFUSION
     Route: 042
     Dates: start: 20100514
  8. REMICADE [Suspect]
     Indication: CROHN^S DISEASE
     Route: 042
  9. REMICADE [Suspect]
     Indication: CROHN^S DISEASE
     Route: 042
  10. REMICADE [Suspect]
     Indication: CROHN^S DISEASE
     Route: 042
  11. REMICADE [Suspect]
     Indication: CROHN^S DISEASE
     Dosage: 7TH INFUSION
     Route: 042
     Dates: start: 20100514
  12. REMICADE [Suspect]
     Indication: CROHN^S DISEASE
     Dosage: 1ST INFUSION
     Route: 042
     Dates: start: 20090821
  13. REMICADE [Suspect]
     Indication: CROHN^S DISEASE
     Route: 042
  14. REMICADE [Suspect]
     Indication: CROHN^S DISEASE
     Route: 042
  15. TAKEPRON [Concomitant]
     Indication: GASTROOESOPHAGEAL REFLUX DISEASE
     Route: 048
     Dates: start: 20030710
  16. RIKKUNSHI-TO [Concomitant]
     Indication: GASTRITIS
     Route: 048
     Dates: start: 20030916, end: 20100607
  17. CEREKINON [Concomitant]
     Indication: GASTRITIS
     Route: 048
     Dates: start: 20050824, end: 20100607
  18. ALLELOCK [Concomitant]
     Indication: RHINITIS ALLERGIC
     Route: 048
     Dates: start: 20061110

REACTIONS (6)
  - Anal cancer [Fatal]
  - Malignant ascites [Unknown]
  - Metastases to reproductive organ [Unknown]
  - Ileus [Unknown]
  - Hydronephrosis [Unknown]
  - Deep vein thrombosis [Unknown]
